FAERS Safety Report 18491842 (Version 4)
Quarter: 2021Q1

REPORT INFORMATION
  Report Type: Spontaneous
  Country: CN (occurrence: CN)
  Receive Date: 20201111
  Receipt Date: 20210322
  Transmission Date: 20210419
  Serious: Yes (Hospitalization)
  Sender: FDA-Public Use
  Company Number: CN-SA-2020SA268245

PATIENT
  Age: 81 Year
  Sex: Female
  Weight: 65 kg

DRUGS (1)
  1. LANTUS [Suspect]
     Active Substance: INSULIN GLARGINE
     Indication: DIABETES MELLITUS
     Dosage: 25?28 IU ONCE DAILY
     Route: 065

REACTIONS (9)
  - Device operational issue [Recovered/Resolved]
  - Blood glucose increased [Unknown]
  - Gait inability [Unknown]
  - Intentional dose omission [Unknown]
  - Exercise tolerance decreased [Unknown]
  - Vertigo [Unknown]
  - Incorrect dose administered [Recovered/Resolved]
  - Weight decreased [Unknown]
  - Blood glucose decreased [Recovered/Resolved]

NARRATIVE: CASE EVENT DATE: 202007
